FAERS Safety Report 25713173 (Version 1)
Quarter: 2025Q3

REPORT INFORMATION
  Report Type: Report from Study
  Country: US (occurrence: US)
  Receive Date: 20250822
  Receipt Date: 20250822
  Transmission Date: 20251020
  Serious: Yes (Other)
  Sender: ABBVIE
  Company Number: US-ABBVIE-6271460

PATIENT
  Age: 67 Year
  Sex: Female

DRUGS (2)
  1. SKYRIZI [Suspect]
     Active Substance: RISANKIZUMAB-RZAA
     Indication: Psoriasis
     Route: 058
     Dates: start: 20250411, end: 20250411
  2. SKYRIZI [Suspect]
     Active Substance: RISANKIZUMAB-RZAA
     Route: 058
     Dates: start: 2025, end: 2025

REACTIONS (15)
  - Eye operation [Unknown]
  - Pharyngitis [Recovered/Resolved]
  - Pruritus [Unknown]
  - Drug ineffective [Unknown]
  - Multiple allergies [Unknown]
  - Cough [Unknown]
  - Throat irritation [Unknown]
  - Toothache [Recovered/Resolved]
  - Oropharyngeal pain [Recovered/Resolved]
  - Somnolence [Not Recovered/Not Resolved]
  - Fatigue [Not Recovered/Not Resolved]
  - Burning sensation [Unknown]
  - Depression [Unknown]
  - Drug ineffective [Unknown]
  - Asthenia [Unknown]

NARRATIVE: CASE EVENT DATE: 20250101
